FAERS Safety Report 10075683 (Version 2)
Quarter: 2014Q2

REPORT INFORMATION
  Report Type: Report from Study
  Country: CA (occurrence: CA)
  Receive Date: 20140414
  Receipt Date: 20140414
  Transmission Date: 20141212
  Serious: Yes (Other)
  Sender: FDA-Public Use
  Company Number: CA-JNJFOC-20130604254

PATIENT
  Sex: Female
  Weight: 69 kg

DRUGS (4)
  1. REMICADE [Suspect]
     Indication: CROHN^S DISEASE
     Dosage: LOADING DOSE, 6 WEEK
     Route: 042
     Dates: start: 2013
  2. REMICADE [Suspect]
     Indication: CROHN^S DISEASE
     Dosage: LOADING DOSE, 0 WEEK
     Route: 042
     Dates: start: 20130107
  3. REMICADE [Suspect]
     Indication: CROHN^S DISEASE
     Route: 042
     Dates: end: 201305
  4. REMICADE [Suspect]
     Indication: CROHN^S DISEASE
     Dosage: LOADING DOSE, 2 WEEK
     Route: 042
     Dates: start: 2013

REACTIONS (5)
  - Anovulvar fistula [Unknown]
  - Premature delivery [Recovered/Resolved]
  - Prolonged labour [Recovered/Resolved]
  - Exposure during pregnancy [Recovered/Resolved]
  - Crohn^s disease [Unknown]
